FAERS Safety Report 7291977-8 (Version None)
Quarter: 2011Q1

REPORT INFORMATION
  Report Type: 
  Country: None (occurrence: None)
  Receive Date: 20110214
  Receipt Date: 20110202
  Transmission Date: 20110831
  Serious: Yes (Hospitalization, Other)
  Sender: FDA-Public Use
  Company Number: US-ELI_LILLY_AND_COMPANY-US201007007247

PATIENT
  Sex: Female
  Weight: 56.689 kg

DRUGS (13)
  1. ERGOCALCIFEROL [Concomitant]
     Dosage: 50000 U, DAILY (1/D)
  2. RANITIDINE [Concomitant]
     Dosage: 150 MG, 2/D
  3. MAXALT /01406501/ [Concomitant]
     Dosage: 10 MG, AS NEEDED
  4. MAXALT /01406501/ [Concomitant]
     Dosage: 20 MG, AS NEEDED
  5. FORTEO [Suspect]
     Indication: OSTEOPOROSIS
     Dosage: 20 UG, DAILY (1/D)
     Route: 058
     Dates: end: 20100728
  6. LORAZEPAM [Concomitant]
  7. DURAGESIC-50 [Concomitant]
     Dosage: 50 UG, EVERY HOUR
  8. DILAUDID [Concomitant]
     Dosage: 4 MG, AS NEEDED
  9. DURAGESIC-50 [Concomitant]
     Indication: PAIN
     Dosage: 100 UG, EVERY HOUR
  10. INDERAL [Concomitant]
     Dosage: 60 MG, 2/D
  11. VITAMIN B-12 [Concomitant]
     Indication: ANAEMIA
  12. ZANAFLEX [Concomitant]
  13. CALCIUM [Concomitant]

REACTIONS (34)
  - DEHYDRATION [None]
  - IMPAIRED HEALING [None]
  - WOUND DRAINAGE [None]
  - PARAESTHESIA [None]
  - NECROSIS [None]
  - WOUND INFECTION STAPHYLOCOCCAL [None]
  - WOUND DEHISCENCE [None]
  - HAEMATOCRIT DECREASED [None]
  - GAIT DISTURBANCE [None]
  - UPPER RESPIRATORY TRACT INFECTION [None]
  - NAUSEA [None]
  - INSOMNIA [None]
  - DEPRESSED MOOD [None]
  - SOFT TISSUE DISORDER [None]
  - PURULENT DISCHARGE [None]
  - PAIN IN EXTREMITY [None]
  - LYMPHOEDEMA [None]
  - WEIGHT DECREASED [None]
  - VOMITING [None]
  - EMOTIONAL DISTRESS [None]
  - HYPOTENSION [None]
  - MUSCLE SPASMS [None]
  - SEROMA [None]
  - DEPRESSED LEVEL OF CONSCIOUSNESS [None]
  - DECREASED APPETITE [None]
  - FATIGUE [None]
  - CALCIFICATION OF MUSCLE [None]
  - PYREXIA [None]
  - OEDEMA PERIPHERAL [None]
  - MEDICAL DEVICE IMPLANTATION [None]
  - MOBILITY DECREASED [None]
  - FIBROSIS [None]
  - SCAR [None]
  - ANAEMIA [None]
